FAERS Safety Report 7949897-9 (Version None)
Quarter: 2011Q4

REPORT INFORMATION
  Report Type: 
  Country: None (occurrence: None)
  Receive Date: 20111130
  Receipt Date: 20111118
  Transmission Date: 20120403
  Serious: Yes (Death, Hospitalization)
  Sender: FDA-Public Use
  Company Number: FR-PFIZER INC-2011282514

PATIENT
  Age: 86 Year
  Sex: Male

DRUGS (4)
  1. SUTENT [Suspect]
     Indication: RENAL CELL CARCINOMA
     Dosage: UNK
     Route: 048
     Dates: end: 20110922
  2. CIPROFLOXACIN [Suspect]
     Dosage: UNK
     Route: 042
     Dates: start: 20110929, end: 20110929
  3. PARACETAMOL [Concomitant]
     Dosage: UNK
     Route: 042
     Dates: start: 20110930, end: 20111008
  4. TIENAM [Suspect]
     Dosage: UNK
     Route: 042
     Dates: start: 20110930, end: 20111005

REACTIONS (6)
  - KLEBSIELLA INFECTION [None]
  - CYSTITIS [None]
  - SEPTIC SHOCK [None]
  - ESCHERICHIA INFECTION [None]
  - PANCREATITIS [None]
  - UROSEPSIS [None]
